FAERS Safety Report 14726825 (Version 4)
Quarter: 2020Q2

REPORT INFORMATION
  Report Type: Report from Study
  Country: US (occurrence: US)
  Receive Date: 20180406
  Receipt Date: 20200512
  Transmission Date: 20200713
  Serious: Yes (Other)
  Sender: FDA-Public Use
  Company Number: US-ROCHE-2098447

PATIENT
  Sex: Male
  Weight: 129.39 kg

DRUGS (11)
  1. OCREVUS [Suspect]
     Active Substance: OCRELIZUMAB
     Route: 065
     Dates: start: 20191015
  2. LOSARTAN. [Concomitant]
     Active Substance: LOSARTAN
     Dosage: ONGOING:YES
     Route: 065
  3. OCREVUS [Suspect]
     Active Substance: OCRELIZUMAB
     Route: 065
     Dates: start: 20190327
  4. METOPROLOL. [Concomitant]
     Active Substance: METOPROLOL
     Dosage: ONGOING:YES?METOPROLOL SUCC ER
     Route: 065
  5. VITAMIN D3 [Concomitant]
     Active Substance: CHOLECALCIFEROL
     Dosage: 5000 UNITS ;ONGOING: YES
     Route: 065
  6. OCREVUS [Suspect]
     Active Substance: OCRELIZUMAB
     Route: 065
     Dates: start: 20180927
  7. OCREVUS [Suspect]
     Active Substance: OCRELIZUMAB
     Route: 065
     Dates: start: 20190408
  8. OCREVUS [Suspect]
     Active Substance: OCRELIZUMAB
     Indication: MULTIPLE SCLEROSIS
     Dosage: NEXT DOSES ON  20/SEP/2017, 27/SEP/2018, 29/MAR/2018 AND 08/APR/2018
     Route: 065
     Dates: start: 20170906
  9. BACLOFEN. [Concomitant]
     Active Substance: BACLOFEN
     Dosage: ONGOING:YES?MUSCLE SPAMS FROM MULTIPLE SCLEROSIS
     Route: 065
  10. FLUOXETINE [Concomitant]
     Active Substance: FLUOXETINE HYDROCHLORIDE
     Dosage: ONGOING:YES
     Route: 065
  11. CLINDAMYCIN. [Concomitant]
     Active Substance: CLINDAMYCIN
     Indication: ABSCESS
     Dosage: ONGOING:NO
     Route: 065
     Dates: end: 201803

REACTIONS (9)
  - Abscess [Recovering/Resolving]
  - Influenza like illness [Recovered/Resolved]
  - Tooth infection [Unknown]
  - Tooth abscess [Recovered/Resolved]
  - Sinusitis [Unknown]
  - Ear infection [Unknown]
  - Decreased immune responsiveness [Unknown]
  - Subcutaneous abscess [Recovering/Resolving]
  - Tooth fracture [Recovered/Resolved with Sequelae]
